FAERS Safety Report 15407245 (Version 1)
Quarter: 2018Q3

REPORT INFORMATION
  Report Type: Spontaneous
  Country: US (occurrence: US)
  Receive Date: 20180920
  Receipt Date: 20180920
  Transmission Date: 20181010
  Serious: No
  Sender: FDA-Public Use
  Company Number: US-ALEXION PHARMACEUTICALS INC.-A201812099

PATIENT
  Sex: Female

DRUGS (2)
  1. SOLIRIS [Suspect]
     Active Substance: ECULIZUMAB
     Indication: MYASTHENIA GRAVIS
     Dosage: UNK
     Route: 065
  2. SOLIRIS [Suspect]
     Active Substance: ECULIZUMAB
     Dosage: UNK, Q2W
     Route: 065

REACTIONS (14)
  - Asthenia [Unknown]
  - Speech disorder [Recovering/Resolving]
  - Visual impairment [Unknown]
  - Limb discomfort [Unknown]
  - Facial paresis [Unknown]
  - Dyspnoea [Unknown]
  - Anxiety [Unknown]
  - Pain [Unknown]
  - Muscular weakness [Unknown]
  - Gait disturbance [Unknown]
  - Mastication disorder [Unknown]
  - Eyelid ptosis [Recovered/Resolved]
  - Lagophthalmos [Unknown]
  - Feeling abnormal [Unknown]
